FAERS Safety Report 22104114 (Version 1)
Quarter: 2023Q1

REPORT INFORMATION
  Report Type: Spontaneous
  Country: IT (occurrence: IT)
  Receive Date: 20230316
  Receipt Date: 20230316
  Transmission Date: 20230417
  Serious: Yes (Other)
  Sender: FDA-Public Use
  Company Number: None

PATIENT
  Age: 34 Year
  Sex: Female
  Weight: 78 kg

DRUGS (2)
  1. METHOTREXATE [Suspect]
     Active Substance: METHOTREXATE
     Indication: Psoriatic arthropathy
     Dosage: INJECTION/INFUSION, 10 MG S.C. INJECTIONS PER WEEK
     Route: 058
     Dates: start: 201712, end: 20200922
  2. ETANERCEPT [Suspect]
     Active Substance: ETANERCEPT
     Indication: Psoriatic arthropathy
     Dosage: 50 MG SC EVERY WEEK
     Route: 058
     Dates: start: 201712, end: 20200922

REACTIONS (2)
  - Herpes zoster infection neurological [Recovered/Resolved with Sequelae]
  - Post herpetic neuralgia [Recovering/Resolving]

NARRATIVE: CASE EVENT DATE: 20200901
